FAERS Safety Report 6900161-6 (Version None)
Quarter: 2010Q3

REPORT INFORMATION
  Report Type: 
  Country: None (occurrence: None)
  Receive Date: 20100803
  Receipt Date: 20100728
  Transmission Date: 20110219
  Serious: Yes (Other)
  Sender: FDA-Public Use
  Company Number: BR-SANOFI-AVENTIS-2010SA044756

PATIENT
  Sex: Male
  Weight: 86 kg

DRUGS (2)
  1. LANTUS [Suspect]
     Route: 058
  2. OPTIPEN [Suspect]

REACTIONS (1)
  - DEMENTIA ALZHEIMER'S TYPE [None]
